FAERS Safety Report 23410375 (Version 6)
Quarter: 2024Q1

REPORT INFORMATION
  Report Type: Report from Study
  Country: AU (occurrence: AU)
  Receive Date: 20240117
  Receipt Date: 20240322
  Transmission Date: 20240410
  Serious: Yes (Hospitalization, Other)
  Sender: FDA-Public Use
  Company Number: AU-BAXTER-2024BAX010620

PATIENT
  Age: 70 Year
  Sex: Female
  Weight: 83 kg

DRUGS (32)
  1. CYCLOPHOSPHAMIDE [Suspect]
     Active Substance: CYCLOPHOSPHAMIDE
     Indication: Diffuse large B-cell lymphoma stage IV
     Dosage: 1545 MG, EVERY 3 WEEKS, ONGOING
     Route: 042
     Dates: start: 20231019
  2. CYCLOPHOSPHAMIDE [Suspect]
     Active Substance: CYCLOPHOSPHAMIDE
     Dosage: MOST RECENT DOSE, CYCLE 3/DAY 1
     Route: 042
     Dates: start: 20231130
  3. DOXORUBICIN [Suspect]
     Active Substance: DOXORUBICIN
     Indication: Diffuse large B-cell lymphoma stage IV
     Dosage: 103 MG, EVERY 3 WEEKS, ONGOING
     Route: 042
     Dates: start: 20231019
  4. DOXORUBICIN [Suspect]
     Active Substance: DOXORUBICIN
     Dosage: MOST RECENT DOSE, CYCLE 3/DAY 1
     Route: 042
     Dates: start: 20231130
  5. EPCORITAMAB [Suspect]
     Active Substance: EPCORITAMAB
     Indication: Diffuse large B-cell lymphoma stage IV
     Dosage: 48 MG C1 (STEP-UP), CYCLES 2 - 4 (21-DAY CYCLE, WEEKLY DOSE), C5 - 8 (21-DAY CYCLE, EVERY 3 WEEKS) P
     Route: 058
     Dates: start: 20231019
  6. EPCORITAMAB [Suspect]
     Active Substance: EPCORITAMAB
     Dosage: MOST RECENT DOSE, CYCLE 3/DAY 1
     Route: 058
     Dates: start: 20231130
  7. VINCRISTINE [Suspect]
     Active Substance: VINCRISTINE
     Indication: Diffuse large B-cell lymphoma stage IV
     Dosage: 2 MG, EVERY 3 WEEKS, ONGOING
     Route: 042
     Dates: start: 20231019
  8. VINCRISTINE [Suspect]
     Active Substance: VINCRISTINE
     Dosage: MOST RECENT DOSE, CYCLE 3/DAY 1
     Route: 042
     Dates: start: 20231130
  9. PREDNISONE [Suspect]
     Active Substance: PREDNISONE
     Indication: Diffuse large B-cell lymphoma stage IV
     Dosage: 100 MG C1-6, DAY 1-5, EVERY 1 DAYS, ONGOING
     Route: 048
     Dates: start: 20231019
  10. PREDNISONE [Suspect]
     Active Substance: PREDNISONE
     Dosage: MOST RECENT DOSE, CYCLE 3/DAY 5
     Route: 048
     Dates: start: 20231204
  11. RITUXIMAB [Suspect]
     Active Substance: RITUXIMAB
     Indication: Diffuse large B-cell lymphoma stage IV
     Dosage: 772.5 MG, EVERY 3 WEEKS, ONGOING
     Route: 042
     Dates: start: 20231019
  12. RITUXIMAB [Suspect]
     Active Substance: RITUXIMAB
     Dosage: MOST RECENT DOSE, CYCLE 3/DAY 1UNK
     Route: 042
     Dates: start: 20231130
  13. BACTRIM [Concomitant]
     Active Substance: SULFAMETHOXAZOLE\TRIMETHOPRIM
     Indication: Antibiotic prophylaxis
     Dosage: 160/800 MG, 3/WEEKS
     Route: 065
     Dates: start: 20231013
  14. METFORMIN [Concomitant]
     Active Substance: METFORMIN HYDROCHLORIDE
     Indication: Type 2 diabetes mellitus
     Dosage: 1000 MG, EVERY 1 DAYS
     Route: 065
     Dates: start: 20231013
  15. PANTOPRAZOLE [Concomitant]
     Active Substance: PANTOPRAZOLE
     Indication: Gastrooesophageal reflux prophylaxis
     Dosage: 40 MG, EVERY 1 DAYS
     Route: 065
     Dates: start: 20231013
  16. CHOLECALCIFEROL [Concomitant]
     Active Substance: CHOLECALCIFEROL
     Indication: Vitamin supplementation
     Dosage: 1000 IU, EVERY 1 DAYS
     Route: 065
     Dates: start: 20231013
  17. MAGNESIUM ASPARTATE [Concomitant]
     Active Substance: MAGNESIUM ASPARTATE
     Indication: Mineral supplementation
     Dosage: 1000 MG, EVERY 1 DAYS
     Route: 065
     Dates: start: 20231013
  18. PALONOSETRON [Concomitant]
     Active Substance: PALONOSETRON
     Indication: Prophylaxis of nausea and vomiting
     Dosage: 250 UG, EVERY 3 WEEKS
     Route: 065
     Dates: start: 20231019
  19. ACETAMINOPHEN [Concomitant]
     Active Substance: ACETAMINOPHEN
     Indication: Antipyresis
     Dosage: 1000 MG, EVERY 3 WEEKS
     Route: 065
     Dates: start: 20231019
  20. ACETAMINOPHEN [Concomitant]
     Active Substance: ACETAMINOPHEN
     Indication: Back pain
     Dosage: 1000 MG, 4/DAYS
     Route: 065
     Dates: start: 20231117
  21. LORATADINE [Concomitant]
     Active Substance: LORATADINE
     Indication: Antiallergic therapy
     Dosage: 10 MG, EVERY 3 WEEKS
     Route: 065
     Dates: start: 20231019
  22. VALACYCLOVIR HYDROCHLORIDE [Concomitant]
     Active Substance: VALACYCLOVIR HYDROCHLORIDE
     Indication: Antiviral prophylaxis
     Dosage: 500 MG, EVERY 1 DAYS
     Route: 065
     Dates: start: 20231019
  23. LIPEGFILGRASTIM [Concomitant]
     Active Substance: LIPEGFILGRASTIM
     Indication: Prophylaxis
     Dosage: 6 MG, EVERY 3 WEEKS
     Route: 065
     Dates: start: 20231020
  24. GLICLAZIDE [Concomitant]
     Active Substance: GLICLAZIDE
     Indication: Type 2 diabetes mellitus
     Dosage: 80 MG
     Route: 065
     Dates: start: 20231013
  25. MOVICOL [Concomitant]
     Active Substance: POLYETHYLENE GLYCOL 3350\POTASSIUM CHLORIDE\SODIUM BICARBONATE\SODIUM CHLORIDE
     Indication: Constipation
     Dosage: 1-2 SACHET, AS NECESSARY
     Route: 065
     Dates: start: 20231022
  26. ALLOPURINOL [Concomitant]
     Active Substance: ALLOPURINOL
     Indication: Prophylaxis
     Dosage: 300 MG, EVERY 1 DAYS
     Route: 065
     Dates: start: 20231013
  27. ALLOPURINOL [Concomitant]
     Active Substance: ALLOPURINOL
     Indication: Gout
  28. PREDNISOLONE [Concomitant]
     Active Substance: PREDNISOLONE
     Indication: Prophylaxis
     Dosage: 100 MG, AS NECESSARY
     Route: 065
     Dates: start: 20231013, end: 20231217
  29. DEXAMETHASONE [Concomitant]
     Active Substance: DEXAMETHASONE
     Indication: Prophylaxis
     Dosage: 10 MG, TOTAL
     Route: 065
     Dates: start: 20231111, end: 20231111
  30. DEXAMETHASONE [Concomitant]
     Active Substance: DEXAMETHASONE
     Dosage: 8 MG, 2/DAYS
     Route: 065
     Dates: start: 20240104, end: 20240108
  31. COLOXYL WITH SENNA [Concomitant]
     Indication: Constipation
     Dosage: 1-2 TABLETS, AS NECESSARY
     Route: 065
     Dates: start: 20231022
  32. CLOTRIMAZOLE [Concomitant]
     Active Substance: CLOTRIMAZOLE
     Indication: Fungal skin infection
     Dosage: 10 MG/ML, 1 APPLICATION AS NECESSARY
     Route: 065
     Dates: start: 20231109

REACTIONS (3)
  - Cytokine release syndrome [Recovered/Resolved]
  - Febrile neutropenia [Recovered/Resolved]
  - Anaemia [Recovered/Resolved]

NARRATIVE: CASE EVENT DATE: 20240102
